FAERS Safety Report 5343942-5 (Version None)
Quarter: 2007Q2

REPORT INFORMATION
  Report Type: 
  Country: None (occurrence: None)
  Receive Date: 20070531
  Receipt Date: 20070531
  Transmission Date: 20071010
  Serious: Yes (Life-Threatening, Other)
  Sender: FDA-Public Use
  Company Number: None

PATIENT
  Sex: Female
  Weight: 56.6996 kg

DRUGS (1)
  1. CELEXA [Suspect]
     Indication: PANIC ATTACK
     Dosage: 10MG PER DAY PO
     Route: 048
     Dates: start: 20070327, end: 20070523

REACTIONS (18)
  - AGGRESSION [None]
  - ANORGASMIA [None]
  - DEPRESSION [None]
  - DEREALISATION [None]
  - IMPAIRED SELF-CARE [None]
  - INTENTIONAL SELF-INJURY [None]
  - IRRITABILITY [None]
  - LIBIDO DECREASED [None]
  - NIGHTMARE [None]
  - PANIC ATTACK [None]
  - SELF ESTEEM DECREASED [None]
  - SLEEP DISORDER [None]
  - SOCIAL AVOIDANT BEHAVIOUR [None]
  - SOMNOLENCE [None]
  - SUICIDAL IDEATION [None]
  - SUICIDE ATTEMPT [None]
  - VISUAL DISTURBANCE [None]
  - WEIGHT INCREASED [None]
